FAERS Safety Report 16966592 (Version 2)
Quarter: 2020Q2

REPORT INFORMATION
  Report Type: Report from Study
  Country: US (occurrence: US)
  Receive Date: 20191028
  Receipt Date: 20200602
  Transmission Date: 20200713
  Serious: Yes (Hospitalization)
  Sender: FDA-Public Use
  Company Number: US-JNJFOC-20191026492

PATIENT
  Age: 67 Year
  Sex: Female
  Weight: 98.97 kg

DRUGS (1)
  1. ESKETAMINE [Suspect]
     Active Substance: ESKETAMINE
     Indication: DEPRESSION
     Dosage: MOST RECENT ON: 07-OCT-2019
     Dates: start: 20170320

REACTIONS (3)
  - Facial paralysis [Recovered/Resolved]
  - Hemiparesis [Recovered/Resolved]
  - Confusional state [Recovered/Resolved]

NARRATIVE: CASE EVENT DATE: 20191011
